FAERS Safety Report 17506483 (Version 1)
Quarter: 2020Q1

REPORT INFORMATION
  Report Type: Spontaneous
  Country: US (occurrence: US)
  Receive Date: 20200305
  Receipt Date: 20200305
  Transmission Date: 20200409
  Serious: No
  Sender: FDA-Public Use
  Company Number: US-ROCHE-2438827

PATIENT
  Sex: Male

DRUGS (1)
  1. XOLAIR [Suspect]
     Active Substance: OMALIZUMAB
     Indication: URTICARIA
     Dosage: FORM STRENGTH: 150 MG/ML
     Route: 058

REACTIONS (4)
  - Peripheral swelling [Unknown]
  - Urticaria [Unknown]
  - Product dose omission [Unknown]
  - Rash macular [Unknown]
